FAERS Safety Report 9137077 (Version 1)
Quarter: 2013Q1

REPORT INFORMATION
  Report Type: Spontaneous
  Country: US (occurrence: US)
  Receive Date: 20130304
  Receipt Date: 20130304
  Transmission Date: 20140127
  Serious: No
  Sender: FDA-Public Use
  Company Number: US-BAYER-2013-025670

PATIENT
  Age: 59 Year
  Sex: Female

DRUGS (7)
  1. ALEVE LIQUID GELS [Suspect]
     Indication: BACK PAIN
     Dosage: 2 DF, TID
     Route: 048
     Dates: start: 199002, end: 199102
  2. ALEVE CAPLET/TABLET,MIDOL EXTENDED RELIEF CAPLET [Suspect]
     Indication: BACK PAIN
     Dosage: 2 DF, QD
     Route: 048
     Dates: start: 201202
  3. CELEXA [Concomitant]
  4. ANTIHYPERTENSIVES [Concomitant]
  5. DEPRESSION MEDICATION [Concomitant]
  6. ANXIETY MEDICATION [Concomitant]
  7. CHOLESTEROL- AND TRIGLYCERIDE REDUCERS [Concomitant]

REACTIONS (1)
  - Overdose [None]
